FAERS Safety Report 18800660 (Version 1)
Quarter: 2021Q1

REPORT INFORMATION
  Report Type: Spontaneous
  Country: US (occurrence: US)
  Receive Date: 20210128
  Receipt Date: 20210128
  Transmission Date: 20210419
  Serious: No
  Sender: FDA-Public Use
  Company Number: US-ABBVIE-20K-163-3620650-00

PATIENT
  Sex: Male

DRUGS (1)
  1. LUPRON DEPOT [Suspect]
     Active Substance: LEUPROLIDE ACETATE
     Indication: PRODUCT USED FOR UNKNOWN INDICATION
     Route: 065

REACTIONS (6)
  - Walking aid user [Unknown]
  - Arthralgia [Unknown]
  - Pain in extremity [Unknown]
  - Type 2 diabetes mellitus [Unknown]
  - Neuralgia [Unknown]
  - Oedema peripheral [Unknown]
